FAERS Safety Report 21730304 (Version 3)
Quarter: 2023Q1

REPORT INFORMATION
  Report Type: Spontaneous
  Country: US (occurrence: US)
  Receive Date: 20221214
  Receipt Date: 20230104
  Transmission Date: 20230418
  Serious: No
  Sender: FDA-Public Use
  Company Number: US-BEH-2022153168

PATIENT
  Age: 57 Year
  Sex: Female

DRUGS (1)
  1. HIZENTRA [Suspect]
     Active Substance: HUMAN IMMUNOGLOBULIN G
     Indication: Hypogammaglobulinaemia
     Dosage: 10 GRAM, QW
     Route: 058

REACTIONS (4)
  - Vasculitic rash [Unknown]
  - Infusion site erythema [Recovered/Resolved]
  - Infusion site swelling [Recovered/Resolved]
  - Pruritus [Recovered/Resolved]
